FAERS Safety Report 5173156-3 (Version None)
Quarter: 2006Q4

REPORT INFORMATION
  Report Type: 
  Country: None (occurrence: None)
  Receive Date: 20061207
  Receipt Date: 20061207
  Transmission Date: 20070319
  Serious: Yes (Hospitalization)
  Sender: FDA-Public Use
  Company Number: None

PATIENT
  Age: 50 Year
  Sex: Female
  Weight: 40 kg

DRUGS (1)
  1. SUTENT [Suspect]
     Indication: RENAL CELL CARCINOMA STAGE IV
     Dosage: 50 MG DAILY X4 WEEKS PO
     Route: 048
     Dates: start: 20061124, end: 20061129

REACTIONS (6)
  - CARDIAC FAILURE CONGESTIVE [None]
  - CONDITION AGGRAVATED [None]
  - DYSPNOEA [None]
  - FATIGUE [None]
  - NAUSEA [None]
  - VENTRICULAR DYSFUNCTION [None]
